FAERS Safety Report 22006411 (Version 1)
Quarter: 2023Q1

REPORT INFORMATION
  Report Type: Spontaneous
  Country: US (occurrence: US)
  Receive Date: 20230217
  Receipt Date: 20230217
  Transmission Date: 20230418
  Serious: Yes (Death, Other)
  Sender: FDA-Public Use
  Company Number: US-FreseniusKabi-FK202301669

PATIENT

DRUGS (2)
  1. HEPARIN SODIUM [Suspect]
     Active Substance: HEPARIN SODIUM
     Indication: Product used for unknown indication
     Dosage: 27000 UNITS?INCREASED THEN DISCONTINUED
     Route: 042
     Dates: start: 20230120, end: 20230120
  2. CANGRELOR [Suspect]
     Active Substance: CANGRELOR
     Indication: Product used for unknown indication
     Route: 042
     Dates: start: 20230120

REACTIONS (3)
  - Death [Fatal]
  - Therapeutic product effect decreased [None]
  - Thrombosis [Unknown]

NARRATIVE: CASE EVENT DATE: 20230120
